FAERS Safety Report 10379984 (Version 2)
Quarter: 2014Q3

REPORT INFORMATION
  Report Type: Report from Study
  Country: US (occurrence: US)
  Receive Date: 20140813
  Receipt Date: 20140813
  Transmission Date: 20150326
  Serious: Yes (Other)
  Sender: FDA-Public Use
  Company Number: US-ROCHE-1304783

PATIENT
  Sex: Female
  Weight: 67.19 kg

DRUGS (5)
  1. SINGULAIR [Concomitant]
     Active Substance: MONTELUKAST SODIUM
     Dosage: ONLY DURING ALLERGY SEASON
     Route: 065
  2. NUTROPIN AQ [Suspect]
     Active Substance: SOMATROPIN
     Route: 058
  3. NUTROPIN AQ [Suspect]
     Active Substance: SOMATROPIN
     Indication: GROWTH HORMONE DEFICIENCY
     Route: 058
  4. NUTROPIN AQ [Suspect]
     Active Substance: SOMATROPIN
     Dosage: /FEB/2014
     Route: 058
  5. NUTROPIN AQ [Suspect]
     Active Substance: SOMATROPIN
     Route: 058

REACTIONS (14)
  - Injection site bruising [Unknown]
  - Weight increased [Unknown]
  - Thyroxine free increased [Unknown]
  - Injection site pain [Recovered/Resolved with Sequelae]
  - Arthralgia [Unknown]
  - Urine leukocyte esterase positive [Unknown]
  - Peripheral swelling [Unknown]
  - Orthosis user [Unknown]
  - Burning sensation [Recovered/Resolved with Sequelae]
  - Blood immunoglobulin A decreased [Unknown]
  - Pain in extremity [Unknown]
  - Hypotension [Unknown]
  - White blood cell count increased [Unknown]
  - Headache [Unknown]
